FAERS Safety Report 24380615 (Version 7)
Quarter: 2025Q1

REPORT INFORMATION
  Report Type: Other
  Country: US (occurrence: US)
  Receive Date: 20240930
  Receipt Date: 20250206
  Transmission Date: 20250409
  Serious: No
  Sender: TRAVERE THERAPEUTICS
  Company Number: US-TRAVERE-2024TVT00914

PATIENT
  Sex: Female

DRUGS (3)
  1. FILSPARI [Suspect]
     Active Substance: SPARSENTAN
     Indication: IgA nephropathy
     Route: 048
     Dates: start: 20240907
  2. FILSPARI [Suspect]
     Active Substance: SPARSENTAN
     Route: 048
     Dates: start: 202411, end: 20241223
  3. ISOSORBIDE [Concomitant]
     Active Substance: ISOSORBIDE

REACTIONS (8)
  - Hypotension [None]
  - Asthenia [None]
  - Hunger [None]
  - Blood potassium increased [Recovering/Resolving]
  - Faeces discoloured [Unknown]
  - Depression [Unknown]
  - Fatigue [Unknown]
  - Disturbance in attention [Unknown]
